FAERS Safety Report 18001781 (Version 2)
Quarter: 2020Q3

REPORT INFORMATION
  Report Type: Spontaneous
  Country: BR (occurrence: BR)
  Receive Date: 20200709
  Receipt Date: 20200821
  Transmission Date: 20201103
  Serious: Yes (Hospitalization)
  Sender: FDA-Public Use
  Company Number: BR-ROCHE-2637661

PATIENT
  Sex: Female

DRUGS (4)
  1. RIVOTRIL [Suspect]
     Active Substance: CLONAZEPAM
     Indication: PANIC DISORDER
  2. RIVOTRIL [Suspect]
     Active Substance: CLONAZEPAM
     Indication: ANXIETY
     Route: 065
  3. RIVOTRIL [Suspect]
     Active Substance: CLONAZEPAM
     Indication: SLEEP DISORDER
  4. RIVOTRIL [Suspect]
     Active Substance: CLONAZEPAM
     Indication: EPILEPSY

REACTIONS (13)
  - Treatment noncompliance [Unknown]
  - Product dispensing error [Unknown]
  - Asthma [Recovered/Resolved]
  - Intentional product use issue [Unknown]
  - Anxiety [Recovered/Resolved]
  - Product prescribing error [Unknown]
  - Cardiac ventricular scarring [Unknown]
  - Hypertension [Unknown]
  - Ventricular dysfunction [Unknown]
  - Myocardial infarction [Recovered/Resolved]
  - Off label use [Unknown]
  - Product administration error [Unknown]
  - Dyspnoea [Recovered/Resolved]
